FAERS Safety Report 5157977-9 (Version None)
Quarter: 2006Q4

REPORT INFORMATION
  Report Type: 
  Country: None (occurrence: None)
  Receive Date: 20061127
  Receipt Date: 20061115
  Transmission Date: 20070319
  Serious: Yes (Other)
  Sender: FDA-Public Use
  Company Number: FR-ROXANE LABORATORIES, INC-2006-BP-13360RO

PATIENT
  Age: 16 Year
  Sex: Female

DRUGS (7)
  1. METHOTREXATE [Suspect]
     Indication: BONE SARCOMA
  2. DANTROLENE SODIUM [Suspect]
     Indication: ANALGESIC EFFECT
     Route: 048
  3. ETOPOSIDE [Suspect]
     Indication: BONE SARCOMA
  4. IFOSFAMIDE [Suspect]
     Indication: BONE SARCOMA
  5. ONDANSETRON [Concomitant]
     Indication: PROPHYLAXIS OF NAUSEA AND VOMITING
  6. METHYLPREDNISOLONE [Concomitant]
  7. NALBUPHINE [Concomitant]
     Indication: ANALGESIC EFFECT
     Route: 042

REACTIONS (9)
  - BLOOD PRESSURE INCREASED [None]
  - CONVULSION [None]
  - CYTOLYTIC HEPATITIS [None]
  - DRUG INTERACTION POTENTIATION [None]
  - DRUG TOXICITY [None]
  - MUCOSAL INFLAMMATION [None]
  - RENAL FAILURE [None]
  - RENAL TUBULAR DISORDER [None]
  - THROMBOCYTOPENIA [None]
